FAERS Safety Report 21269861 (Version 1)
Quarter: 2022Q3

REPORT INFORMATION
  Report Type: Spontaneous
  Country: MY (occurrence: MY)
  Receive Date: 20220830
  Receipt Date: 20220830
  Transmission Date: 20221027
  Serious: Yes (Disabling)
  Sender: FDA-Public Use
  Company Number: MY-ELI_LILLY_AND_COMPANY-MY202208012285

PATIENT
  Age: 60 Year
  Sex: Female

DRUGS (2)
  1. CYRAMZA [Suspect]
     Active Substance: RAMUCIRUMAB
     Indication: Colorectal cancer
     Dosage: 500 MG, 2/M
     Route: 042
     Dates: start: 202102, end: 202206
  2. FLUOROURACIL\IRINOTECAN\LEUCOVORIN [Concomitant]
     Active Substance: FLUOROURACIL\IRINOTECAN\LEUCOVORIN
     Indication: Colorectal cancer
     Dosage: UNK UNK, 2/M
     Dates: start: 202102, end: 202206

REACTIONS (1)
  - Fistula [Not Recovered/Not Resolved]
